FAERS Safety Report 10372809 (Version 1)
Quarter: 2014Q3

REPORT INFORMATION
  Report Type: Spontaneous
  Country: US (occurrence: US)
  Receive Date: 20140808
  Receipt Date: 20140808
  Transmission Date: 20150326
  Serious: No
  Sender: FDA-Public Use
  Company Number: US-BRISTOL-MYERS SQUIBB COMPANY-19461631

PATIENT
  Age: 66 Year
  Sex: Male

DRUGS (1)
  1. SPRYCEL [Suspect]
     Active Substance: DASATINIB
     Indication: CHRONIC MYELOID LEUKAEMIA
     Dosage: RESTARTED 28/AUG/2013.TABLET.THREE TIMES PER WEEK.20MGDAILY
     Route: 048
     Dates: start: 20130226

REACTIONS (1)
  - Rash [Unknown]

NARRATIVE: CASE EVENT DATE: 201306
